FAERS Safety Report 8198324 (Version 13)
Quarter: 2015Q2

REPORT INFORMATION
  Report Type: Report from Study
  Country: BE (occurrence: BE)
  Receive Date: 20111025
  Receipt Date: 20150409
  Transmission Date: 20150821
  Serious: Yes (Life-Threatening, Hospitalization)
  Sender: FDA-Public Use
  Company Number: BE-ROCHE-1003859

PATIENT
  Age: 44 Year
  Sex: Female
  Weight: 66 kg

DRUGS (13)
  1. VEMURAFENIB [Suspect]
     Active Substance: VEMURAFENIB
     Route: 048
     Dates: start: 20120312
  2. DAFALGAN CODEINE [Concomitant]
     Active Substance: ACETAMINOPHEN\CODEINE PHOSPHATE
     Route: 065
     Dates: start: 2011, end: 20120222
  3. D-CURE [Concomitant]
     Dosage: DAILY DOSE: 10 ML (AS REQUIRED)
     Route: 065
     Dates: start: 20120101
  4. VEMURAFENIB [Suspect]
     Active Substance: VEMURAFENIB
     Indication: METASTATIC MALIGNANT MELANOMA
     Dosage: LAST DOSE PRIOR TO SAE 27/DEC/2011. TEMPORARILY INTERRUPTED.
     Route: 048
     Dates: start: 20110909, end: 20111227
  5. VEMURAFENIB [Suspect]
     Active Substance: VEMURAFENIB
     Dosage: LAST DOSE PRIOR TO SAE: 06/MAR/2012
     Route: 048
     Dates: start: 20120131, end: 20120307
  6. SERLAIN [Concomitant]
     Active Substance: SERTRALINE HYDROCHLORIDE
     Route: 065
     Dates: start: 20120228
  7. MEDROL [Concomitant]
     Active Substance: METHYLPREDNISOLONE
     Route: 065
     Dates: start: 20120222, end: 20120419
  8. VEMURAFENIB [Suspect]
     Active Substance: VEMURAFENIB
     Dosage: LAST DOSE PRIOR TO SAE 26/JAN/2012. TEMPORARILY INTERRUPTED.
     Route: 048
     Dates: start: 20120120, end: 20120126
  9. DAFALGAN CODEINE [Concomitant]
     Active Substance: ACETAMINOPHEN\CODEINE PHOSPHATE
     Route: 065
     Dates: start: 20120306, end: 20120306
  10. DAFALGAN CODEINE [Concomitant]
     Active Substance: ACETAMINOPHEN\CODEINE PHOSPHATE
     Route: 065
     Dates: start: 2011
  11. MEDROL [Concomitant]
     Active Substance: METHYLPREDNISOLONE
     Route: 065
     Dates: start: 20120113, end: 20120126
  12. XANAX [Concomitant]
     Active Substance: ALPRAZOLAM
     Route: 065
     Dates: start: 2011
  13. ZOMETA [Concomitant]
     Active Substance: ZOLEDRONIC ACID
     Route: 065
     Dates: start: 20110909

REACTIONS (1)
  - Epilepsy [Recovered/Resolved]

NARRATIVE: CASE EVENT DATE: 20111010
